FAERS Safety Report 23726742 (Version 1)
Quarter: 2024Q2

REPORT INFORMATION
  Report Type: Spontaneous
  Country: GB (occurrence: GB)
  Receive Date: 20240410
  Receipt Date: 20240410
  Transmission Date: 20240716
  Serious: Yes (Other)
  Sender: FDA-Public Use
  Company Number: GB-MHRA-TPP1286644C9151471YC1711379608311

PATIENT
  Age: 98 Year
  Sex: Female
  Weight: 53 kg

DRUGS (19)
  1. BUPRENORPHINE [Suspect]
     Active Substance: BUPRENORPHINE
     Indication: Product used for unknown indication
     Dosage: 1 DOSAGE FORM, 1/WEEK, 5MICROGRAMS/HOUR. DATE THE PATCH
     Route: 065
     Dates: start: 20240315
  2. CAPSAICIN [Concomitant]
     Active Substance: CAPSAICIN
     Indication: Product used for unknown indication
     Dosage: 1 DOSAGE FORM, QID, APPLY
     Route: 065
     Dates: start: 20231120, end: 20240311
  3. CEPHALEXIN [Concomitant]
     Active Substance: CEPHALEXIN
     Indication: Product used for unknown indication
     Dosage: 1 DOSAGE FORM, BID, FOR 3 DAYS
     Route: 065
     Dates: start: 20240129, end: 20240201
  4. CLOPIDOGREL [Concomitant]
     Active Substance: CLOPIDOGREL BISULFATE
     Indication: Product used for unknown indication
     Dosage: 1 DOSAGE FORM, QD
     Route: 065
     Dates: start: 20230705
  5. METHYLPREDNISOLONE [Concomitant]
     Active Substance: METHYLPREDNISOLONE
     Indication: Product used for unknown indication
     Dosage: USE AS DIRECTED
     Route: 065
     Dates: start: 20240110, end: 20240111
  6. DERMOL [Concomitant]
     Active Substance: BENZALKONIUM CHLORIDE\CHLORHEXIDINE HYDROCHLORIDE\ISOPROPYL MYRISTATE\PARAFFIN
     Indication: Skin lesion
     Dosage: USE TO LESIONS ON BUTTOCKS
     Route: 065
     Dates: start: 20230705
  7. DOCUSATE [Concomitant]
     Active Substance: DOCUSATE
     Indication: Constipation
     Dosage: TAKE UP TO 3 TIMES A DAY
     Route: 065
     Dates: start: 20231120
  8. LANOLIN\LIGHT MINERAL OIL\PARAFFIN [Concomitant]
     Active Substance: LANOLIN\LIGHT MINERAL OIL\PARAFFIN
     Indication: Product used for unknown indication
     Dosage: APPLY
     Route: 065
     Dates: start: 20230705
  9. FUROSEMIDE [Concomitant]
     Active Substance: FUROSEMIDE
     Indication: Product used for unknown indication
     Dosage: TAKE ONE OR TWO EACH MORNING
     Route: 065
     Dates: start: 20230715, end: 20240316
  10. IBUPROFEN [Concomitant]
     Active Substance: IBUPROFEN
     Indication: Product used for unknown indication
     Dosage: APPLY 3 TIMES A DAY TO HIP AND KNEE
     Route: 065
     Dates: start: 20230420
  11. POLYETHYLENE GLYCOLS [Concomitant]
     Active Substance: POLYETHYLENE GLYCOLS
     Indication: Constipation
     Dosage: DAILY, 1-4 SACHETS
     Route: 065
     Dates: start: 20210814
  12. UNSPECIFIED INGREDIENT [Concomitant]
     Active Substance: UNSPECIFIED INGREDIENT
     Indication: Product used for unknown indication
     Dosage: USE AS DIRECTED
     Route: 065
     Dates: start: 20240110, end: 20240111
  13. UNSPECIFIED INGREDIENT [Concomitant]
     Active Substance: UNSPECIFIED INGREDIENT
     Dosage: USE AS DIRECTED
     Route: 065
     Dates: start: 20240312
  14. UNSPECIFIED INGREDIENT [Concomitant]
     Active Substance: UNSPECIFIED INGREDIENT
     Dosage: USE AS DIRECTED
     Route: 065
     Dates: start: 20230705
  15. UNSPECIFIED INGREDIENT [Concomitant]
     Active Substance: UNSPECIFIED INGREDIENT
     Dosage: BD
     Route: 065
     Dates: start: 20230705
  16. NIFEDIPINE [Concomitant]
     Active Substance: NIFEDIPINE
     Indication: Product used for unknown indication
     Dosage: 1 DOSAGE FORM, BID
     Route: 065
     Dates: start: 20230705
  17. NITROFURANTOIN [Concomitant]
     Active Substance: NITROFURANTOIN
     Indication: Product used for unknown indication
     Dosage: 1 DOSAGE FORM, BID, FOR 7 DAYS
     Route: 065
     Dates: start: 20240125, end: 20240201
  18. ACETAMINOPHEN [Concomitant]
     Active Substance: ACETAMINOPHEN
     Indication: Product used for unknown indication
     Dosage: 2 DOSAGE FORM, TID, ADDED TO BLISTER PACK
     Route: 065
     Dates: start: 20230705
  19. SENNA [Concomitant]
     Active Substance: SENNA LEAF\SENNOSIDES\SENNOSIDES A AND B
     Indication: Constipation
     Dosage: TAKE 1 OR 2 AT NIGHT
     Route: 065
     Dates: start: 20231120, end: 20240311

REACTIONS (2)
  - Confusional state [Unknown]
  - Hallucination [Unknown]
